FAERS Safety Report 21483379 (Version 1)
Quarter: 2022Q4

REPORT INFORMATION
  Report Type: Spontaneous
  Country: US (occurrence: US)
  Receive Date: 20221020
  Receipt Date: 20221020
  Transmission Date: 20230113
  Serious: No
  Sender: FDA-Public Use
  Company Number: US-CELLTRION INC.-2022US002854

PATIENT

DRUGS (1)
  1. INFLECTRA [Suspect]
     Active Substance: INFLIXIMAB-DYYB
     Indication: Rheumatoid arthritis
     Dosage: 300 MG EVERY 8 WEEKS
     Route: 065
     Dates: start: 202012

REACTIONS (5)
  - Micturition urgency [Unknown]
  - Dysuria [Unknown]
  - Malaise [Unknown]
  - Product dose omission issue [Unknown]
  - Overdose [Unknown]
